FAERS Safety Report 10407927 (Version 3)
Quarter: 2014Q3

REPORT INFORMATION
  Report Type: Report from Study
  Country: US (occurrence: US)
  Receive Date: 20140825
  Receipt Date: 20140919
  Transmission Date: 20150326
  Serious: Yes (Hospitalization)
  Sender: FDA-Public Use
  Company Number: US-MERCK-1407USA004273

PATIENT
  Age: 70 Year
  Sex: Male
  Weight: 94.5 kg

DRUGS (7)
  1. VORINOSTAT [Suspect]
     Active Substance: VORINOSTAT
     Indication: ACUTE MYELOID LEUKAEMIA
     Dosage: 100 MG, DAY 1-4-8-11
     Route: 048
     Dates: start: 20140630, end: 20140707
  2. ACYCLOVIR. [Concomitant]
     Active Substance: ACYCLOVIR
     Dosage: 400 MG: 1 TABLET, ORALLY, BID
     Route: 048
  3. MORPHINE [Concomitant]
     Active Substance: MORPHINE
     Dosage: 2 MG, Q4H
     Route: 042
     Dates: start: 20140706, end: 20140707
  4. ONDANSETRON [Concomitant]
     Active Substance: ONDANSETRON
     Dosage: 4 MG, Q6H, IV PUSH
     Route: 042
     Dates: start: 20140706, end: 20140707
  5. SORAFENIB [Suspect]
     Active Substance: SORAFENIB
     Indication: ACUTE MYELOID LEUKAEMIA
     Dosage: 200 MG, DAY 1-14
     Route: 048
     Dates: start: 20140630, end: 20140707
  6. ACETAMINOPHEN. [Concomitant]
     Active Substance: ACETAMINOPHEN
     Dosage: 600 MG, Q4H
     Route: 048
     Dates: start: 20140706, end: 20140707
  7. BORTEZOMIB [Suspect]
     Active Substance: BORTEZOMIB
     Indication: ACUTE MYELOID LEUKAEMIA
     Dosage: 2.70 MG, DAY 1-4-8-11
     Route: 040
     Dates: start: 20140630, end: 20140707

REACTIONS (2)
  - Diarrhoea [Not Recovered/Not Resolved]
  - Klebsiella bacteraemia [Recovered/Resolved]

NARRATIVE: CASE EVENT DATE: 20140707
